FAERS Safety Report 9201820 (Version 1)
Quarter: 2013Q2

REPORT INFORMATION
  Report Type: Spontaneous
  Country: RU (occurrence: RU)
  Receive Date: 20130401
  Receipt Date: 20130401
  Transmission Date: 20140414
  Serious: Yes (Other)
  Sender: FDA-Public Use
  Company Number: RU-ASTRAZENECA-2013SE20517

PATIENT
  Sex: Male

DRUGS (7)
  1. BRILINTA [Suspect]
     Indication: ACUTE CORONARY SYNDROME
     Route: 048
     Dates: start: 201303, end: 201303
  2. BRILINTA [Suspect]
     Indication: PERCUTANEOUS CORONARY INTERVENTION
     Route: 048
     Dates: start: 201303, end: 201303
  3. HEPARIN [Concomitant]
  4. BETA BLOCKERS [Concomitant]
  5. STATINS [Concomitant]
  6. THROMBO ASS [Concomitant]
  7. ACE INHIBITORS [Concomitant]

REACTIONS (1)
  - Rash [Recovered/Resolved]
